FAERS Safety Report 17350030 (Version 2)
Quarter: 2020Q1

REPORT INFORMATION
  Report Type: Report from Study
  Country: None (occurrence: US)
  Receive Date: 20200130
  Receipt Date: 20200211
  Transmission Date: 20200409
  Serious: Yes (Other)
  Sender: FDA-Public Use
  Company Number: US-ABBVIE-20K-163-3254502-00

PATIENT
  Age: 33 Year
  Sex: Male
  Weight: 172.52 kg

DRUGS (1)
  1. SKYRIZI [Suspect]
     Active Substance: RISANKIZUMAB-RZAA
     Indication: PSORIASIS
     Dosage: INITIAL TWO INJECTIONS
     Route: 058
     Dates: start: 20191116, end: 201911

REACTIONS (3)
  - Renal cancer stage IV [Recovered/Resolved]
  - Blood urine present [Unknown]
  - Lymphadenectomy [Unknown]

NARRATIVE: CASE EVENT DATE: 201911
